FAERS Safety Report 20224382 (Version 1)
Quarter: 2021Q4

REPORT INFORMATION
  Report Type: Other
  Country: None (occurrence: DK)
  Receive Date: 20211223
  Receipt Date: 20211223
  Transmission Date: 20220303
  Serious: Yes (Hospitalization, Other)
  Sender: FDA-Public Use
  Company Number: DK-B.Braun Medical Inc.-2123337

PATIENT
  Age: 26 Year
  Sex: Female

DRUGS (1)
  1. MEROPENEM\SODIUM CHLORIDE [Suspect]
     Active Substance: MEROPENEM\SODIUM CHLORIDE

REACTIONS (2)
  - Hepatic enzyme increased [Recovered/Resolved]
  - Exposure during pregnancy [Recovered/Resolved]
